FAERS Safety Report 24863888 (Version 1)
Quarter: 2025Q1

REPORT INFORMATION
  Report Type: Spontaneous
  Country: MY (occurrence: MY)
  Receive Date: 20250120
  Receipt Date: 20250120
  Transmission Date: 20250409
  Serious: Yes (Other)
  Sender: GLAXOSMITHKLINE
  Company Number: MY-GSK-MY2025APC005503

PATIENT

DRUGS (1)
  1. LAMICTAL [Suspect]
     Active Substance: LAMOTRIGINE
     Indication: Meningioma
     Dosage: 50 MG, BID
     Route: 048

REACTIONS (3)
  - Rash maculo-papular [Recovering/Resolving]
  - Mouth ulceration [Recovering/Resolving]
  - Lacrimation increased [Recovering/Resolving]
